FAERS Safety Report 9228981 (Version 1)
Quarter: 2013Q2

REPORT INFORMATION
  Report Type: Report from Study
  Country: US (occurrence: US)
  Receive Date: 20130412
  Receipt Date: 20130412
  Transmission Date: 20140414
  Serious: No
  Sender: FDA-Public Use
  Company Number: US-VERTEX PHARMACEUTICALS INC.-2013-004813

PATIENT
  Sex: Male

DRUGS (7)
  1. VX-950 (TELAPREVIR) [Suspect]
     Indication: HEPATITIS C
     Dosage: 750 MG, TID
     Route: 048
  2. RIBAVIRIN [Suspect]
     Indication: HEPATITIS C
     Dosage: 200 MG
  3. PEGASYS [Suspect]
     Indication: HEPATITIS C
     Dosage: PROCLICK
  4. VALIUM [Concomitant]
     Dosage: 5 MG
  5. LISINOPRIL [Concomitant]
     Dosage: 5 MG
  6. METFORMIN [Concomitant]
     Dosage: 500 MG
  7. CELEXA [Concomitant]
     Dosage: 20 MG

REACTIONS (3)
  - White blood cell count decreased [Unknown]
  - Arthralgia [Unknown]
  - Rash [Unknown]
